FAERS Safety Report 16039743 (Version 1)
Quarter: 2019Q1

REPORT INFORMATION
  Report Type: Spontaneous
  Country: US (occurrence: US)
  Receive Date: 20190306
  Receipt Date: 20190306
  Transmission Date: 20190418
  Serious: Yes (Other)
  Sender: FDA-Public Use
  Company Number: US-BAYER-2019-041510

PATIENT
  Sex: Male

DRUGS (1)
  1. XOFIGO [Suspect]
     Active Substance: RADIUM RA-223 DICHLORIDE
     Dosage: 55 KBQ (1.49 MICROCURIE) PER KG BODY WEIGHT 4 XOFIGO INJECTION TREATMENT
     Route: 042

REACTIONS (2)
  - Back pain [None]
  - Neck pain [None]
